FAERS Safety Report 15940215 (Version 1)
Quarter: 2019Q1

REPORT INFORMATION
  Report Type: Spontaneous
  Country: FR (occurrence: FR)
  Receive Date: 20190208
  Receipt Date: 20190208
  Transmission Date: 20190417
  Serious: Yes (Hospitalization)
  Sender: FDA-Public Use
  Company Number: FR-ASTRAZENECA-2019SE20061

PATIENT
  Age: 67 Year
  Sex: Female

DRUGS (13)
  1. MACROGOL [Concomitant]
     Active Substance: POLYETHYLENE GLYCOLS
  2. TAREG [Concomitant]
     Active Substance: VALSARTAN
  3. PANTOPRAZOLE [Concomitant]
     Active Substance: PANTOPRAZOLE
  4. KARDEGIC [Suspect]
     Active Substance: ASPIRIN DL-LYSINE
     Indication: THROMBOSIS PROPHYLAXIS
     Dosage: BAG 75 MG DAILY
     Route: 048
  5. BISOPROLOL [Concomitant]
     Active Substance: BISOPROLOL
  6. HUMALOG [Concomitant]
     Active Substance: INSULIN LISPRO
  7. ATORVASTATIN [Concomitant]
     Active Substance: ATORVASTATIN
  8. BRILIQUE [Suspect]
     Active Substance: TICAGRELOR
     Indication: THROMBOSIS PROPHYLAXIS
     Route: 048
     Dates: end: 20170102
  9. PARACETAMOL [Concomitant]
     Active Substance: ACETAMINOPHEN
  10. ZOLPIDEM [Concomitant]
     Active Substance: ZOLPIDEM\ZOLPIDEM TARTRATE
  11. LANTUS [Concomitant]
     Active Substance: INSULIN GLARGINE
  12. LASILIX [Concomitant]
     Active Substance: FUROSEMIDE
  13. CERNEVIT [Concomitant]
     Active Substance: VITAMINS

REACTIONS (3)
  - Fall [Recovered/Resolved]
  - Rectal haemorrhage [Recovered/Resolved]
  - Red blood cell count decreased [Recovered/Resolved]

NARRATIVE: CASE EVENT DATE: 20170102
